FAERS Safety Report 9063077 (Version 2)
Quarter: 2013Q1

REPORT INFORMATION
  Report Type: Spontaneous
  Country: US (occurrence: US)
  Receive Date: 20130213
  Receipt Date: 20130227
  Transmission Date: 20140127
  Serious: Yes (Hospitalization, Other)
  Sender: FDA-Public Use
  Company Number: US-BAYER-2013-016449

PATIENT
  Age: 17 Year
  Sex: Female
  Weight: 83.45 kg

DRUGS (5)
  1. YAZ [Suspect]
     Dosage: UNK
     Dates: start: 20100701, end: 20110108
  2. YASMIN [Suspect]
     Indication: POLYCYSTIC OVARIES
  3. LOVENOX [Concomitant]
     Indication: DEEP VEIN THROMBOSIS
  4. OCELLA [Suspect]
  5. GIANVI [Suspect]

REACTIONS (4)
  - Deep vein thrombosis [None]
  - Deep vein thrombosis [None]
  - Pelvic venous thrombosis [None]
  - Pulmonary embolism [None]
